FAERS Safety Report 9800791 (Version 1)
Quarter: 2014Q1

REPORT INFORMATION
  Report Type: Spontaneous
  Country: US (occurrence: US)
  Receive Date: 20140107
  Receipt Date: 20140107
  Transmission Date: 20141002
  Serious: No
  Sender: FDA-Public Use
  Company Number: US-PFIZER INC-2014001132

PATIENT
  Age: 52 Year
  Sex: Female
  Weight: 126.98 kg

DRUGS (3)
  1. LYRICA [Suspect]
     Indication: FIBROMYALGIA
     Dosage: 75 MG, 2X/DAY
     Route: 048
     Dates: start: 201310, end: 2013
  2. LYRICA [Suspect]
     Dosage: 75 MG, 1X/DAY (AT BED TIME)
     Route: 048
     Dates: start: 2013
  3. ASPIRIN [Concomitant]
     Dosage: UNK

REACTIONS (7)
  - Somnolence [Not Recovered/Not Resolved]
  - Nausea [Not Recovered/Not Resolved]
  - Headache [Not Recovered/Not Resolved]
  - Influenza like illness [Not Recovered/Not Resolved]
  - Feeling abnormal [Not Recovered/Not Resolved]
  - Malaise [Not Recovered/Not Resolved]
  - Feeling jittery [Not Recovered/Not Resolved]
